FAERS Safety Report 16681203 (Version 1)
Quarter: 2019Q3

REPORT INFORMATION
  Report Type: Spontaneous
  Country: FR (occurrence: FR)
  Receive Date: 20190808
  Receipt Date: 20190808
  Transmission Date: 20191004
  Serious: Yes (Hospitalization)
  Sender: FDA-Public Use
  Company Number: FR-TEVA-2019-FR-1089231

PATIENT
  Age: 86 Year
  Sex: Female

DRUGS (5)
  1. GENTAMICINE [Suspect]
     Active Substance: GENTAMICIN
     Indication: STAPHYLOCOCCAL INFECTION
     Dosage: 420 MG
     Route: 042
     Dates: start: 20190104, end: 20190104
  2. COUMADINE 2 MG, COMPRIME SECABLE [Concomitant]
     Active Substance: WARFARIN SODIUM
     Route: 048
  3. VANCOMYCINE [Suspect]
     Active Substance: VANCOMYCIN
     Indication: STAPHYLOCOCCAL INFECTION
     Dosage: UNKNOWN
     Route: 042
     Dates: start: 20190102, end: 20190106
  4. IOMERON [Suspect]
     Active Substance: IOMEPROL
     Indication: IMAGING PROCEDURE
     Dosage: UNKNOWN
     Route: 042
     Dates: start: 20190104, end: 20190104
  5. CARDENSIEL 2,5 MG, COMPRIME PELLICULE SECABLE [Concomitant]
     Active Substance: BISOPROLOL FUMARATE
     Route: 048

REACTIONS (1)
  - Acute kidney injury [Recovered/Resolved]

NARRATIVE: CASE EVENT DATE: 20190110
